FAERS Safety Report 9419807 (Version 1)
Quarter: 2013Q3

REPORT INFORMATION
  Report Type: Spontaneous
  Country: IT (occurrence: IT)
  Receive Date: 20130725
  Receipt Date: 20130725
  Transmission Date: 20140515
  Serious: Yes (Life-Threatening, Hospitalization, Other)
  Sender: FDA-Public Use
  Company Number: IT-B.I. PHARMACEUTICALS,INC./RIDGEFIELD-2013-BI-21592GD

PATIENT
  Age: 12 Month
  Sex: Male
  Weight: 10 kg

DRUGS (5)
  1. IPRATROPIUMBROMID [Suspect]
     Indication: BRONCHIOLITIS
     Dosage: 250 MCG
     Route: 055
  2. SALBUTAMOL [Suspect]
     Indication: BRONCHIOLITIS
     Dosage: 100 MCG/KG
     Route: 055
  3. EPINEPHRINE [Suspect]
     Indication: BRONCHIOLITIS
     Dosage: 0.25 MG/KG
     Route: 055
  4. METHYLPREDNISOLONE [Suspect]
     Indication: BRONCHIOLITIS
     Dosage: 1 MG/KG
     Route: 042
  5. OXYGEN [Concomitant]
     Indication: BRONCHIOLITIS

REACTIONS (6)
  - Drug ineffective [Unknown]
  - General physical health deterioration [Unknown]
  - Dyspnoea [Unknown]
  - Agitation [Recovered/Resolved]
  - Tachycardia [Recovered/Resolved]
  - Respiratory acidosis [Unknown]
